FAERS Safety Report 12496269 (Version 1)
Quarter: 2016Q2

REPORT INFORMATION
  Report Type: Spontaneous
  Country: US (occurrence: US)
  Receive Date: 20160624
  Receipt Date: 20160624
  Transmission Date: 20160815
  Serious: No
  Sender: FDA-Public Use
  Company Number: US-JNJFOC-20160603010

PATIENT
  Age: 72 Year
  Sex: Female

DRUGS (1)
  1. PANCREAZE [Suspect]
     Active Substance: PANCRELIPASE AMYLASE\PANCRELIPASE LIPASE\PANCRELIPASE PROTEASE
     Indication: PRODUCT USED FOR UNKNOWN INDICATION
     Dosage: 10,500 UNITS/ CAPSULES/ 10,500 UNITS/ TWO CAPSULES WITH EACH MEAL
     Route: 048
     Dates: start: 20131216

REACTIONS (2)
  - Drug dispensing error [Unknown]
  - Poor quality drug administered [Not Recovered/Not Resolved]

NARRATIVE: CASE EVENT DATE: 20131216
